FAERS Safety Report 7223074 (Version 1)
Quarter: 2020Q3

REPORT INFORMATION
  Report Type: Spontaneous
  Country: US (occurrence: US)
  Receive Date: 20091218
  Receipt Date: 20091218
  Transmission Date: 20201105
  Serious: Yes (Other)
  Sender: FDA-Public Use
  Company Number: GXKR2009US13336

PATIENT
  Age: 67 Year
  Sex: Female

DRUGS (2)
  1. ALENDRONIC ACID [Suspect]
     Active Substance: ALENDRONIC ACID
     Indication: OSTEOPENIA
     Dosage: 70 MG/WEEK
     Dates: start: 1991, end: 2007
  2. IBANDRONIC ACID. [Suspect]
     Active Substance: IBANDRONIC ACID
     Indication: OSTEOPENIA
     Dosage: 250 MG MONTHLY
     Dates: start: 2007

REACTIONS (4)
  - Fracture delayed union [Recovered/Resolved]
  - Pathological fracture [Recovered/Resolved]
  - Intramedullary rod insertion [Recovered/Resolved]
  - Pain [Recovered/Resolved]
